FAERS Safety Report 21457033 (Version 1)
Quarter: 2022Q4

REPORT INFORMATION
  Report Type: Spontaneous
  Country: FR (occurrence: FR)
  Receive Date: 20221014
  Receipt Date: 20221014
  Transmission Date: 20230113
  Serious: Yes (Other)
  Sender: FDA-Public Use
  Company Number: FR-Accord-281687

PATIENT
  Age: 59 Year
  Sex: Female

DRUGS (1)
  1. TACROLIMUS [Suspect]
     Active Substance: TACROLIMUS
     Indication: Immunosuppression
     Dates: start: 200411, end: 201203

REACTIONS (3)
  - Chronic kidney disease [Unknown]
  - Hepatitis C [Recovered/Resolved]
  - Hepatic fibrosis [Recovered/Resolved]

NARRATIVE: CASE EVENT DATE: 20080101
